FAERS Safety Report 5258421-3 (Version None)
Quarter: 2007Q1

REPORT INFORMATION
  Report Type: 
  Country: None (occurrence: None)
  Receive Date: 20070308
  Receipt Date: 20070226
  Transmission Date: 20070707
  Serious: Yes (Hospitalization, Other)
  Sender: FDA-Public Use
  Company Number: US-BAYER-200616818BWH

PATIENT
  Age: 52 Year
  Sex: Male

DRUGS (2)
  1. LEVITRA [Suspect]
     Indication: DRUG USE FOR UNKNOWN INDICATION
     Dosage: TOTAL DAILY DOSE: 20 MG  UNIT DOSE: 20 MG
     Route: 048
     Dates: start: 20060401
  2. PERCOCET [Concomitant]

REACTIONS (5)
  - BLINDNESS [None]
  - BLINDNESS TRANSIENT [None]
  - COLON CANCER [None]
  - DEHYDRATION [None]
  - OPTIC ISCHAEMIC NEUROPATHY [None]
